FAERS Safety Report 4443747-3 (Version None)
Quarter: 2004Q3

REPORT INFORMATION
  Report Type: 
  Country: None (occurrence: None)
  Receive Date: 20040729
  Receipt Date: 20040301
  Transmission Date: 20050211
  Serious: Yes (Death)
  Sender: FDA-Public Use
  Company Number: USA-2004-0013463

PATIENT
  Age: 23 Year
  Sex: Female
  Weight: 97.5 kg

DRUGS (9)
  1. MORPHINE SULFATE (SIMILAT TO NDA 19-516) (MORPHINE SULFATE) [Suspect]
  2. BUTALBITAL [Suspect]
  3. CODEINE (CODEINE) [Suspect]
  4. ALPRAZOLAM [Suspect]
  5. LORAZEPAM [Suspect]
  6. CITALOPRAM [Suspect]
  7. PROMETHAZINE [Suspect]
  8. TOPIRAMATE [Suspect]
  9. TOPIRAMATE [Suspect]

REACTIONS (2)
  - INTENTIONAL OVERDOSE [None]
  - MULTIPLE DRUG OVERDOSE [None]
